FAERS Safety Report 5447012-7 (Version None)
Quarter: 2007Q3

REPORT INFORMATION
  Report Type: 
  Country: None (occurrence: None)
  Receive Date: 20070810
  Receipt Date: 20060407
  Transmission Date: 20080115
  Serious: Yes (Hospitalization)
  Sender: FDA-Public Use
  Company Number: PHEH2006US04631

PATIENT
  Age: 78 Year
  Sex: Male

DRUGS (11)
  1. VISUDYNE [Suspect]
     Indication: MACULAR DEGENERATION
     Dates: start: 20060331, end: 20060331
  2. VISUDYNE [Suspect]
     Indication: MACULAR DEGENERATION
     Dates: start: 20050829, end: 20050829
  3. VISUDYNE [Suspect]
     Indication: MACULAR DEGENERATION
     Dates: start: 20050524, end: 20050524
  4. VISUDYNE [Suspect]
     Indication: MACULAR DEGENERATION
     Dates: start: 20050218, end: 20050218
  5. SIMVASTATIN [Concomitant]
  6. DIGOXIN [Concomitant]
  7. ATACAND [Concomitant]
  8. WARFARIN SODIUM [Concomitant]
  9. GLIPIZIDE [Concomitant]
  10. SOTALOL HYDROCHLORIDE [Concomitant]
  11. NITROGLYCERIN [Concomitant]

REACTIONS (1)
  - HEPATIC ENZYME INCREASED [None]
